FAERS Safety Report 9969366 (Version 1)
Quarter: 2014Q1

REPORT INFORMATION
  Report Type: Spontaneous
  Country: US (occurrence: US)
  Receive Date: 20140306
  Receipt Date: 20140306
  Transmission Date: 20141002
  Serious: Yes (Hospitalization)
  Sender: FDA-Public Use
  Company Number: US-BEH-2014040867

PATIENT
  Age: 24 Year
  Sex: Female
  Weight: 82 kg

DRUGS (10)
  1. PRIVIGEN [Suspect]
     Dosage: 20 GM VIAL;40 GM DAILY FOR 4 DAYS EVERY MONTH
     Route: 042
     Dates: start: 20140107, end: 20140111
  2. PRIVIGEN [Suspect]
     Indication: PYODERMA GANGRENOSUM
     Dosage: DAILY X 4 DAYS
     Route: 042
     Dates: start: 20131209, end: 20131212
  3. FLUCONAZOLE [Concomitant]
     Indication: CANDIDA INFECTION
     Route: 048
  4. METOPROLOL [Concomitant]
     Indication: HEART RATE INCREASED
     Dosage: 12.5MG
     Route: 048
  5. ONDANSETRON [Concomitant]
     Indication: NAUSEA
     Dosage: 4 MG IV PRIOR TO IVIG
     Route: 042
  6. ONDANSETRON [Concomitant]
     Indication: VOMITING
     Dosage: 4 MG IV PRIOR TO IVIG
     Route: 042
  7. NORMAL SALINE [Concomitant]
     Indication: PROPHYLAXIS AGAINST DEHYDRATION
     Dosage: 250 ML PRIOR TO IVIG
     Route: 042
  8. ACETAMINOPHEN [Concomitant]
     Indication: HEADACHE
     Route: 048
  9. ACETAMINOPHEN [Concomitant]
     Indication: PROPHYLAXIS
     Route: 048
  10. DIPHENHYDRAMINE [Concomitant]
     Indication: PROPHYLAXIS
     Dosage: 25-50 MG PRIOR TO INFUSION
     Route: 042

REACTIONS (7)
  - Pulmonary embolism [Recovered/Resolved]
  - Pyrexia [Unknown]
  - Hypotension [Unknown]
  - Heart rate increased [Recovered/Resolved]
  - Device related infection [Unknown]
  - Candida infection [Unknown]
  - Pyrexia [Not Recovered/Not Resolved]
